FAERS Safety Report 7380279-7 (Version None)
Quarter: 2011Q1

REPORT INFORMATION
  Report Type: 
  Country: None (occurrence: None)
  Receive Date: 20110329
  Receipt Date: 20100204
  Transmission Date: 20110831
  Serious: No
  Sender: FDA-Public Use
  Company Number: US-BAYER-201013823NA

PATIENT
  Sex: Female

DRUGS (4)
  1. AMOXICILLIN [Concomitant]
     Indication: HERNIA
  2. OMEPRAZOLE [Concomitant]
  3. MIRENA [Suspect]
     Dosage: 20 ?G/D, CONT
     Dates: start: 20090601
  4. CLARITHROMYCIN [Concomitant]
     Indication: HERNIA

REACTIONS (6)
  - NAUSEA [None]
  - DIZZINESS [None]
  - IRRITABILITY [None]
  - VAGINAL DISCHARGE [None]
  - ERUCTATION [None]
  - FEELING COLD [None]
